FAERS Safety Report 24553628 (Version 1)
Quarter: 2024Q4

REPORT INFORMATION
  Report Type: Spontaneous
  Country: US (occurrence: US)
  Receive Date: 20241028
  Receipt Date: 20241028
  Transmission Date: 20250115
  Serious: No
  Sender: ROCHE
  Company Number: US-ROCHE-3550850

PATIENT
  Sex: Male
  Weight: 40.82 kg

DRUGS (5)
  1. NUTROPIN AQ [Suspect]
     Active Substance: SOMATROPIN
     Indication: Blood growth hormone
     Dosage: NUSPIN 20MG PEN
     Route: 058
  2. UNSPECIFIED INGREDIENT [Concomitant]
     Active Substance: UNSPECIFIED INGREDIENT
     Dosage: EVERY NIGHT, THROUGH A PUMP, WITH SODIUM BICARBONATE, AND CARNITINE
     Route: 042
  3. SODIUM BICARBONATE [Concomitant]
     Active Substance: SODIUM BICARBONATE
     Dosage: EVERY NIGHT, THROUGH A PUMP, WITH PHOSPHATE, AND CARNITINE
     Route: 042
  4. CARNITINE [Concomitant]
     Active Substance: CARNITINE
     Dosage: EVERY NIGHT, THROUGH A PUMP, WITH SODIUM BICARBONATE, AND PHOSPHATE
     Route: 042
  5. CALCITRIOL [Concomitant]
     Active Substance: CALCITRIOL
     Dates: start: 20080623

REACTIONS (2)
  - Product quality issue [Unknown]
  - No adverse event [Unknown]
